FAERS Safety Report 7487557-1 (Version None)
Quarter: 2011Q2

REPORT INFORMATION
  Report Type: 
  Country: None (occurrence: None)
  Receive Date: 20110518
  Receipt Date: 20110511
  Transmission Date: 20111010
  Serious: Yes (Hospitalization)
  Sender: FDA-Public Use
  Company Number: FR-BRISTOL-MYERS SQUIBB COMPANY-15742539

PATIENT
  Age: 58 Year
  Sex: Female

DRUGS (2)
  1. METHOTREXATE [Concomitant]
     Indication: RHEUMATOID ARTHRITIS
  2. ORENCIA [Suspect]
     Indication: RHEUMATOID ARTHRITIS
     Dosage: 2ND ONE:11FEB2011; 3RD ONE:25FEB2011
     Route: 042
     Dates: start: 20110127, end: 20110225

REACTIONS (2)
  - COLITIS ISCHAEMIC [None]
  - ABDOMINAL PAIN [None]
